FAERS Safety Report 15918645 (Version 1)
Quarter: 2019Q1

REPORT INFORMATION
  Report Type: Spontaneous
  Country: FR (occurrence: FR)
  Receive Date: 20190205
  Receipt Date: 20190205
  Transmission Date: 20190417
  Serious: Yes (Death, Hospitalization)
  Sender: FDA-Public Use
  Company Number: FR-MYLANLABS-2019M1009123

PATIENT
  Age: 86 Year
  Sex: Female

DRUGS (5)
  1. FORTUM                             /00559702/ [Suspect]
     Active Substance: CEFTAZIDIME
     Indication: MEDICAL DEVICE SITE JOINT INFECTION
     Dosage: UNK
     Route: 042
     Dates: start: 20160523, end: 20160525
  2. COLIMYCINE                         /02640401/ [Suspect]
     Active Substance: COLISTIMETHATE SODIUM\PENICILLIN G POTASSIUM
     Indication: MEDICAL DEVICE SITE JOINT INFECTION
     Dosage: UNK
     Route: 042
     Dates: start: 20160525, end: 20160531
  3. AMIKACIN. [Suspect]
     Active Substance: AMIKACIN
     Indication: MEDICAL DEVICE SITE JOINT INFECTION
     Dosage: UNK
     Route: 042
     Dates: start: 20160523, end: 20160531
  4. CEFEPIME [Suspect]
     Active Substance: CEFEPIME HYDROCHLORIDE
     Indication: MEDICAL DEVICE SITE JOINT INFECTION
     Dosage: UNK
     Route: 042
     Dates: start: 20160525, end: 20160531
  5. VANCOMYCIN [Suspect]
     Active Substance: VANCOMYCIN
     Indication: MEDICAL DEVICE SITE JOINT INFECTION
     Dosage: UNK
     Route: 042
     Dates: start: 20160520, end: 20160523

REACTIONS (1)
  - Acute kidney injury [Fatal]

NARRATIVE: CASE EVENT DATE: 20160531
